FAERS Safety Report 23674811 (Version 1)
Quarter: 2024Q1

REPORT INFORMATION
  Report Type: Spontaneous
  Country: US (occurrence: US)
  Receive Date: 20240326
  Receipt Date: 20240326
  Transmission Date: 20240410
  Serious: Yes (Other)
  Sender: FDA-Public Use
  Company Number: US-009507513-2403USA007726

PATIENT
  Age: 67 Year
  Sex: Female

DRUGS (4)
  1. KEYTRUDA [Suspect]
     Active Substance: PEMBROLIZUMAB
     Indication: Bladder cancer
     Dosage: UNK UNK {DAY 1 {21 DAY CYCLE) CYCLICAL
     Dates: start: 202304
  2. KEYTRUDA [Suspect]
     Active Substance: PEMBROLIZUMAB
     Dosage: UNK UNK {DAY 1 {21 DAY CYCLE) CYCLICAL
     Dates: start: 202308
  3. PADCEV [Suspect]
     Active Substance: ENFORTUMAB VEDOTIN-EJFV
     Indication: Bladder cancer
     Dosage: UNK, ONCE
     Route: 042
     Dates: start: 202304
  4. PADCEV [Suspect]
     Active Substance: ENFORTUMAB VEDOTIN-EJFV
     Dosage: UNK UNK, QW
     Route: 042
     Dates: start: 202308

REACTIONS (5)
  - Malignant neoplasm progression [Unknown]
  - Neuropathy peripheral [Recovering/Resolving]
  - Ageusia [Recovered/Resolved]
  - Alopecia [Recovered/Resolved]
  - Therapy non-responder [Unknown]

NARRATIVE: CASE EVENT DATE: 20230401
